FAERS Safety Report 6815389-3 (Version None)
Quarter: 2010Q3

REPORT INFORMATION
  Report Type: 
  Country: None (occurrence: None)
  Receive Date: 20100702
  Receipt Date: 20100701
  Transmission Date: 20110219
  Serious: Yes (Hospitalization)
  Sender: FDA-Public Use
  Company Number: GXKR2010DE07249

PATIENT
  Age: 83 Year
  Sex: Male

DRUGS (9)
  1. ALLOPURINOL [Suspect]
     Indication: GOUT
     Dosage: UNK
     Dates: start: 20100401
  2. PREDNISOLON [Concomitant]
     Route: 048
  3. BISOPROLOL FUMARATE [Concomitant]
  4. FURORESE [Concomitant]
  5. HYDROCHLOROTHIAZIDE [Concomitant]
  6. ACETYLSALICYLIC ACID [Concomitant]
  7. PANTOPRAZOLE [Concomitant]
  8. METOCLOPRAMIDE [Concomitant]
  9. MACROGOL [Concomitant]

REACTIONS (2)
  - ACUTE HEPATIC FAILURE [None]
  - DRUG TOXICITY [None]
